FAERS Safety Report 6983612-0 (Version None)
Quarter: 2010Q3

REPORT INFORMATION
  Report Type: 
  Country: None (occurrence: None)
  Receive Date: 20100914
  Receipt Date: 20050225
  Transmission Date: 20110219
  Serious: Yes (Hospitalization)
  Sender: FDA-Public Use
  Company Number: US-WYE-H07076008

PATIENT
  Age: 46 Year
  Sex: Male
  Weight: 90.72 kg

DRUGS (6)
  1. IBUPROFEN [Suspect]
     Indication: PRODUCT USED FOR UNKNOWN INDICATION
     Dosage: UNKNOWN
     Route: 048
     Dates: start: 20010409, end: 20010409
  2. PHENTERMINE [Suspect]
     Indication: PRODUCT USED FOR UNKNOWN INDICATION
     Dosage: UNKNOWN
     Route: 048
     Dates: start: 20010409, end: 20010409
  3. PROPOXYPHENE NAPSYLATE W/ ACETAMINOPHEN [Suspect]
     Indication: PRODUCT USED FOR UNKNOWN INDICATION
     Dosage: UNKNOWN
     Route: 048
     Dates: start: 20010409, end: 20010409
  4. BENADRYL [Suspect]
     Indication: PRODUCT USED FOR UNKNOWN INDICATION
     Dosage: UNKNOWN
     Dates: start: 20010409, end: 20010409
  5. MERIDIA [Suspect]
     Indication: WEIGHT DECREASED
     Dosage: UNKNOWN
     Route: 048
     Dates: start: 20010409, end: 20010409
  6. HYDROCODONE BITARTRATE + ACETAMINOPHEN [Suspect]
     Indication: PRODUCT USED FOR UNKNOWN INDICATION
     Dosage: UNKNOWN
     Route: 048
     Dates: start: 20010409, end: 20010409

REACTIONS (6)
  - AGITATION [None]
  - BLOOD CREATINE PHOSPHOKINASE INCREASED [None]
  - BLOOD PRESSURE INCREASED [None]
  - HEART RATE INCREASED [None]
  - INTENTIONAL OVERDOSE [None]
  - SUICIDE ATTEMPT [None]
